FAERS Safety Report 9099882 (Version 1)
Quarter: 2013Q1

REPORT INFORMATION
  Report Type: Spontaneous
  Country: JP (occurrence: JP)
  Receive Date: 20130215
  Receipt Date: 20130215
  Transmission Date: 20140127
  Serious: Yes (Hospitalization)
  Sender: FDA-Public Use
  Company Number: PHHY2013JP013039

PATIENT
  Age: 84 Year
  Sex: Male

DRUGS (1)
  1. LAMISIL [Suspect]
     Dosage: UNK UKN, UNK
     Route: 048

REACTIONS (1)
  - Pneumonia [Unknown]
